FAERS Safety Report 7402434-X (Version None)
Quarter: 2011Q2

REPORT INFORMATION
  Report Type: 
  Country: None (occurrence: None)
  Receive Date: 20110408
  Receipt Date: 20110330
  Transmission Date: 20111010
  Serious: Yes (Death, Life-Threatening)
  Sender: FDA-Public Use
  Company Number: PHHY2011DE27712

PATIENT
  Age: 90 Year
  Sex: Female

DRUGS (6)
  1. DOMINAL [Suspect]
     Dosage: 80 MG, UNK
     Route: 048
     Dates: start: 20100412
  2. XIPAMIDE [Concomitant]
     Dosage: UNK
     Dates: start: 20100409
  3. METOPROLOL [Suspect]
     Dosage: 25 MG, UNK
     Route: 048
     Dates: start: 20100419
  4. DOMINAL [Suspect]
     Dosage: 40 MG, UNK
     Dates: start: 20100409, end: 20100411
  5. ALLOPURINOL [Concomitant]
  6. JONOSTERIL [Concomitant]

REACTIONS (2)
  - SUDDEN DEATH [None]
  - ELECTROCARDIOGRAM QT PROLONGED [None]
